FAERS Safety Report 10946261 (Version 1)
Quarter: 2015Q1

REPORT INFORMATION
  Report Type: Spontaneous
  Country: NL (occurrence: NL)
  Receive Date: 20150323
  Receipt Date: 20150323
  Transmission Date: 20150721
  Serious: Yes (Hospitalization)
  Sender: FDA-Public Use
  Company Number: NL-ASTRAZENECA-2014SE91717

PATIENT
  Age: 14 Year
  Sex: Female
  Weight: 55 kg

DRUGS (2)
  1. NAPROXEN (NON AZ PRODUCT) [Suspect]
     Active Substance: NAPROXEN
     Indication: SURGERY
     Route: 048
     Dates: start: 20141105, end: 20141117
  2. OMEPRAZOL [Suspect]
     Active Substance: OMEPRAZOLE
     Indication: PROPHYLAXIS AGAINST GASTROINTESTINAL ULCER
     Route: 048
     Dates: start: 20141105

REACTIONS (3)
  - Abdominal discomfort [Recovering/Resolving]
  - Melaena [Recovering/Resolving]
  - Muscle spasms [Recovered/Resolved]

NARRATIVE: CASE EVENT DATE: 20141117
